FAERS Safety Report 21799387 (Version 1)
Quarter: 2022Q4

REPORT INFORMATION
  Report Type: Report from Study
  Country: US (occurrence: US)
  Receive Date: 20221230
  Receipt Date: 20221230
  Transmission Date: 20230113
  Serious: No
  Sender: FDA-Public Use
  Company Number: US-ABBVIE-4220083

PATIENT
  Age: 44 Year
  Sex: Female

DRUGS (3)
  1. HUMIRA [Suspect]
     Active Substance: ADALIMUMAB
     Indication: Ankylosing spondylitis
     Dosage: HUMIRA CF?FORM STRENGTH: 40 MG
     Route: 058
  2. HUMIRA [Suspect]
     Active Substance: ADALIMUMAB
     Dosage: HUMIRA CF?FORM STRENGTH: 40 MG
     Route: 058
  3. COVID-19 vaccine [Concomitant]
     Indication: COVID-19 immunisation
     Route: 030

REACTIONS (1)
  - Vulvovaginal mycotic infection [Not Recovered/Not Resolved]

NARRATIVE: CASE EVENT DATE: 20221001
